FAERS Safety Report 11282610 (Version 1)
Quarter: 2015Q3

REPORT INFORMATION
  Report Type: Spontaneous
  Country: US (occurrence: None)
  Receive Date: 20150716
  Receipt Date: 20150716
  Transmission Date: 20151125
  Serious: Yes (Hospitalization)
  Sender: FDA-Public Use
  Company Number: US-H14001-15-01228

PATIENT
  Age: 24 Year
  Sex: Female

DRUGS (2)
  1. LEVETIRACETAM. [Suspect]
     Active Substance: LEVETIRACETAM
     Indication: SEIZURE
     Dosage: 500 MG (250 MG,2 IN 1 D),UNKNOWN
  2. CARBAMAZEPINE. [Suspect]
     Active Substance: CARBAMAZEPINE
     Indication: SEIZURE

REACTIONS (9)
  - Mental status changes [None]
  - Ventricular extrasystoles [None]
  - Ventricular tachycardia [None]
  - Torsade de pointes [None]
  - Dyspnoea [None]
  - Drug ineffective [None]
  - Electrocardiogram QT prolonged [None]
  - Diabetes insipidus [None]
  - Pneumonia [None]
